FAERS Safety Report 9374340 (Version 1)
Quarter: 2013Q2

REPORT INFORMATION
  Report Type: Spontaneous
  Country: FR (occurrence: FR)
  Receive Date: 20130628
  Receipt Date: 20130628
  Transmission Date: 20140414
  Serious: Yes (Other)
  Sender: FDA-Public Use
  Company Number: PHHY2013FR066540

PATIENT
  Age: 78 Year
  Sex: Female

DRUGS (6)
  1. EXFORGE [Suspect]
     Indication: HYPERTENSION
     Dosage: 1 DF (160 MG VALS AND 10 MG AMLO), QD
     Route: 048
     Dates: start: 201012, end: 20110222
  2. ATROVENT [Concomitant]
     Dosage: 5 DF, DAILY (0.5 MG/2ML)
     Dates: start: 20110221, end: 20110301
  3. BRICANYL [Concomitant]
     Dosage: 5 DF, DAILY (5 MG/2ML)
     Dates: start: 20110221, end: 20110308
  4. SOLUMEDROL [Concomitant]
     Dosage: 40 MG, QD
     Route: 042
     Dates: start: 20110221, end: 20110305
  5. INEXIUM//ESOMEPRAZOLE MAGNESIUM [Concomitant]
     Dosage: 40 MG, UNK
     Route: 048
  6. TEMESTA [Concomitant]
     Dosage: 1 MG, QD
     Route: 048

REACTIONS (2)
  - Condition aggravated [Recovered/Resolved]
  - Renal failure [Recovered/Resolved]
